FAERS Safety Report 24769802 (Version 1)
Quarter: 2024Q4

REPORT INFORMATION
  Report Type: Spontaneous
  Country: US (occurrence: US)
  Receive Date: 20241224
  Receipt Date: 20241224
  Transmission Date: 20250115
  Serious: Yes (Other)
  Sender: ABBVIE
  Company Number: US-ABBVIE-6056289

PATIENT
  Age: 69 Year
  Sex: Female

DRUGS (3)
  1. REFRESH TEARS PF [Suspect]
     Active Substance: CARBOXYMETHYLCELLULOSE SODIUM\GLYCERIN
     Indication: Dry eye
     Route: 047
  2. REFRESH TEARS PF [Suspect]
     Active Substance: CARBOXYMETHYLCELLULOSE SODIUM\GLYCERIN
     Indication: Keratectomy
  3. REFRESH RELIEVA PF [Concomitant]
     Active Substance: CARBOXYMETHYLCELLULOSE SODIUM\GLYCERIN
     Indication: Product used for unknown indication

REACTIONS (7)
  - Keratectomy [Unknown]
  - Ocular hyperaemia [Unknown]
  - Product odour abnormal [Not Recovered/Not Resolved]
  - Periorbital swelling [Unknown]
  - Eye irritation [Unknown]
  - Abnormal sensation in eye [Recovered/Resolved]
  - Eyelid irritation [Recovered/Resolved]
